FAERS Safety Report 15964378 (Version 3)
Quarter: 2019Q2

REPORT INFORMATION
  Report Type: Report from Study
  Country: CA (occurrence: CA)
  Receive Date: 20190215
  Receipt Date: 20190502
  Transmission Date: 20190711
  Serious: Yes (Hospitalization, Other)
  Sender: FDA-Public Use
  Company Number: CA-AMGEN-CANSL2019020983

PATIENT
  Age: 70 Year
  Sex: Female
  Weight: 72.56 kg

DRUGS (12)
  1. FLEXERIL [Concomitant]
     Active Substance: CYCLOBENZAPRINE HYDROCHLORIDE
     Dosage: 10 MILLIGRAM, TID
  2. VITAMIN B12 [Concomitant]
     Active Substance: CYANOCOBALAMIN
     Dosage: 1000 MILLIGRAM, QMO
     Route: 030
  3. ZOPICLONE [Concomitant]
     Active Substance: ZOPICLONE
     Dosage: 5 MILLIGRAM, QD
  4. METOPROLOL. [Concomitant]
     Active Substance: METOPROLOL
     Dosage: 25 MILLIGRAM, BID
  5. NAPROXEN. [Concomitant]
     Active Substance: NAPROXEN
     Dosage: 500 MILLIGRAM, BID, PRN
     Route: 048
  6. HCTZ [Concomitant]
     Active Substance: HYDROCHLOROTHIAZIDE
     Dosage: 25 MILLIGRAM, QD
     Route: 048
  7. ZANTAC [Concomitant]
     Active Substance: RANITIDINE HYDROCHLORIDE
     Dosage: 150 MILLIGRAM, BID
  8. PROLIA [Suspect]
     Active Substance: DENOSUMAB
     Indication: OSTEOPOROSIS POSTMENOPAUSAL
     Dosage: 60 MILLIGRAM, Q6MO
     Route: 058
     Dates: start: 20161213, end: 20190219
  9. ONDANSETRON [Concomitant]
     Active Substance: ONDANSETRON
     Dosage: 8 MILLIGRAM, Q8H, PRN
     Route: 048
  10. PANTOPRAZOLE MAGNESIUM [Concomitant]
     Active Substance: PANTOPRAZOLE MAGNESIUM
     Dosage: 40 MILLIGRAM
  11. ACYCLOVIR. [Concomitant]
     Active Substance: ACYCLOVIR
     Dosage: 400 MILLIGRAM, TID
     Route: 048
  12. SERC [Concomitant]
     Dosage: 16 MILLIGRAM, TID, PRN
     Route: 048

REACTIONS (16)
  - Dizziness [Unknown]
  - Deafness [Unknown]
  - Gingival ulceration [Unknown]
  - Asthenia [Unknown]
  - Heart rate irregular [Unknown]
  - Hypertension [Unknown]
  - Upper respiratory tract infection [Unknown]
  - Presyncope [Unknown]
  - Heart rate increased [Unknown]
  - Syncope [Unknown]
  - Depression [Unknown]
  - Self-injurious ideation [Unknown]
  - Fatigue [Unknown]
  - Skin infection [Unknown]
  - Chest discomfort [Unknown]
  - Ear infection viral [Unknown]

NARRATIVE: CASE EVENT DATE: 2017
